FAERS Safety Report 5962501-4 (Version None)
Quarter: 2008Q4

REPORT INFORMATION
  Report Type: 
  Country: None (occurrence: None)
  Receive Date: 20081121
  Receipt Date: 20081112
  Transmission Date: 20090506
  Serious: Yes (Other)
  Sender: FDA-Public Use
  Company Number: JP-PFIZER INC-2008095079

PATIENT
  Age: 60 Year
  Sex: Female

DRUGS (1)
  1. PROVERA [Suspect]
     Route: 048
     Dates: end: 20071201

REACTIONS (1)
  - PAPILLOEDEMA [None]
